FAERS Safety Report 8513238-9 (Version None)
Quarter: 2012Q3

REPORT INFORMATION
  Report Type: 
  Country: None (occurrence: None)
  Receive Date: 20120716
  Receipt Date: 20120711
  Transmission Date: 20120928
  Serious: Yes (Death)
  Sender: FDA-Public Use
  Company Number: US-BAXTER-2012BAX011343

PATIENT

DRUGS (3)
  1. LENALIDOMIDE [Suspect]
     Indication: AMYLOIDOSIS
     Route: 048
  2. DEXAMETHASONE [Suspect]
     Indication: AMYLOIDOSIS
     Route: 048
  3. CYTOXAN [Suspect]
     Indication: AMYLOIDOSIS
     Route: 048

REACTIONS (2)
  - SEPSIS [None]
  - MULTI-ORGAN FAILURE [None]
